FAERS Safety Report 18382729 (Version 1)
Quarter: 2020Q4

REPORT INFORMATION
  Report Type: Spontaneous
  Country: US (occurrence: US)
  Receive Date: 20201014
  Receipt Date: 20201014
  Transmission Date: 20210114
  Serious: Yes (Death)
  Sender: FDA-Public Use
  Company Number: None

PATIENT
  Age: 60 Year
  Sex: Male

DRUGS (6)
  1. FLUCONAZOLE. [Concomitant]
     Active Substance: FLUCONAZOLE
  2. TACROLIMUS. [Concomitant]
     Active Substance: TACROLIMUS
  3. ONDANSETRON [Concomitant]
     Active Substance: ONDANSETRON
  4. PREVYMIS [Concomitant]
     Active Substance: LETERMOVIR
  5. PROCHLOPERAZINE [Concomitant]
  6. MYCOPHENOLATE [Suspect]
     Active Substance: MYCOPHENOLIC ACID
     Indication: PRODUCT USED FOR UNKNOWN INDICATION
     Route: 048
     Dates: start: 20200828

REACTIONS (1)
  - Death [None]

NARRATIVE: CASE EVENT DATE: 20201007
